FAERS Safety Report 7392654-5 (Version None)
Quarter: 2011Q1

REPORT INFORMATION
  Report Type: 
  Country: None (occurrence: None)
  Receive Date: 20110330
  Receipt Date: 20110330
  Transmission Date: 20110831
  Serious: No
  Sender: FDA-Public Use
  Company Number: None

PATIENT
  Sex: Male
  Weight: 81.4 kg

DRUGS (4)
  1. CARBOPLATIN [Suspect]
     Dosage: 2100 MG
     Dates: end: 20110315
  2. NAPROXEN [Concomitant]
  3. LORTAB [Concomitant]
  4. PACLITAXEL [Suspect]
     Dosage: 600 MG
     Dates: end: 20110315

REACTIONS (6)
  - PALLOR [None]
  - PAIN [None]
  - DYSPHAGIA [None]
  - DRY SKIN [None]
  - ASTHENIA [None]
  - MALNUTRITION [None]
